FAERS Safety Report 9541896 (Version 4)
Quarter: 2013Q4

REPORT INFORMATION
  Report Type: Report from Study
  Country: US (occurrence: US)
  Receive Date: 20130923
  Receipt Date: 20131108
  Transmission Date: 20140711
  Serious: Yes (Other)
  Sender: FDA-Public Use
  Company Number: PHEH2013US019524

PATIENT
  Age: 65 Year
  Sex: Female

DRUGS (2)
  1. GILENYA [Suspect]
     Indication: MULTIPLE SCLEROSIS
     Dosage: 0.5 MG, QD
     Route: 048
     Dates: start: 20130912
  2. XARELTO [Concomitant]
     Indication: DIZZINESS
     Dosage: 20 MG, UNK

REACTIONS (6)
  - Brain neoplasm [Recovered/Resolved]
  - Visual acuity reduced [Recovered/Resolved]
  - Stress [Recovered/Resolved]
  - Nervousness [Recovered/Resolved]
  - Cognitive disorder [Recovered/Resolved]
  - Chest pain [Recovered/Resolved]
